FAERS Safety Report 9148708 (Version 1)
Quarter: 2013Q1

REPORT INFORMATION
  Report Type: Spontaneous
  Country: IN (occurrence: None)
  Receive Date: 20130305
  Receipt Date: 20130305
  Transmission Date: 20140127
  Serious: Yes (Death)
  Sender: FDA-Public Use
  Company Number: FK201300722

PATIENT
  Sex: 0

DRUGS (1)
  1. NANOXEL (PACLITAXEL) (PACLITAXEL) [Suspect]
     Dosage: 5TH CYCLE

REACTIONS (1)
  - Fall [None]
